FAERS Safety Report 6709969-3 (Version None)
Quarter: 2010Q2

REPORT INFORMATION
  Report Type: 
  Country: None (occurrence: None)
  Receive Date: 20100504
  Receipt Date: 20100426
  Transmission Date: 20101027
  Serious: Yes (Other)
  Sender: FDA-Public Use
  Company Number: US-AMGEN-KDC408545

PATIENT
  Age: 70 Year
  Sex: Male
  Weight: 99.2 kg

DRUGS (2)
  1. PANITUMUMAB [Suspect]
     Indication: PANCREATIC CARCINOMA
     Dates: start: 20100125
  2. GEMCITABINE HCL [Suspect]

REACTIONS (1)
  - GAMMA-GLUTAMYLTRANSFERASE ABNORMAL [None]
